FAERS Safety Report 5807980-8 (Version None)
Quarter: 2008Q3

REPORT INFORMATION
  Report Type: 
  Country: None (occurrence: None)
  Receive Date: 20080711
  Receipt Date: 20080703
  Transmission Date: 20090109
  Serious: Yes (Hospitalization, Other)
  Sender: FDA-Public Use
  Company Number: CA-PFIZER INC-2008056008

PATIENT
  Age: 63 Year
  Sex: Male

DRUGS (3)
  1. LIPITOR [Suspect]
     Route: 048
  2. COENZYME Q10 [Concomitant]
  3. ANTIHYPERTENSIVES [Concomitant]

REACTIONS (3)
  - CORONARY ARTERY BYPASS [None]
  - MUSCULOSKELETAL STIFFNESS [None]
  - MYALGIA [None]
